FAERS Safety Report 17645728 (Version 1)
Quarter: 2020Q2

REPORT INFORMATION
  Report Type: Report from Study
  Country: US (occurrence: US)
  Receive Date: 20200408
  Receipt Date: 20200408
  Transmission Date: 20200713
  Serious: Yes (Death)
  Sender: FDA-Public Use
  Company Number: US-MYLANLABS-2020M1035292

PATIENT

DRUGS (7)
  1. METHOTREXATE. [Concomitant]
     Active Substance: METHOTREXATE
     Indication: BRAIN NEOPLASM
     Dosage: STANDARD CHEMOTHERAPY
     Route: 065
  2. CISPLATIN. [Suspect]
     Active Substance: CISPLATIN
     Indication: BRAIN NEOPLASM
     Dosage: STANDARD CHEMOTHERAPY
     Route: 065
  3. ETOPOSIDE. [Concomitant]
     Active Substance: ETOPOSIDE
     Indication: BRAIN NEOPLASM
     Dosage: STANDARD CHEMOTHERAPY
     Route: 065
  4. CARBOPLATIN. [Suspect]
     Active Substance: CARBOPLATIN
     Indication: BRAIN NEOPLASM
     Dosage: CONDITIONING REGIMEN ADMINISTERED DAILY 2 DOSES ON DAYS -4, -3
     Route: 065
  5. CYCLOPHOSPHAMIDE. [Concomitant]
     Active Substance: CYCLOPHOSPHAMIDE
     Indication: BRAIN NEOPLASM
     Dosage: STANDARD CHEMOTHERAPY
     Route: 065
  6. VINCRISTINE [Concomitant]
     Active Substance: VINCRISTINE
     Indication: BRAIN NEOPLASM
     Dosage: STANDARD CHEMOTHERAPY
     Route: 065
  7. THIOTEPA. [Concomitant]
     Active Substance: THIOTEPA
     Indication: BRAIN NEOPLASM
     Dosage: ADMINISTERED ON DAYS -4 AND -3
     Route: 065

REACTIONS (2)
  - Renal failure [Fatal]
  - Nephropathy toxic [Fatal]
